FAERS Safety Report 4649135-9 (Version None)
Quarter: 2005Q2

REPORT INFORMATION
  Report Type: 
  Country: None (occurrence: None)
  Receive Date: 20050429
  Receipt Date: 20050422
  Transmission Date: 20051028
  Serious: Yes (Hospitalization)
  Sender: FDA-Public Use
  Company Number: 2003-4292

PATIENT
  Sex: Male

DRUGS (8)
  1. QUILONORM RETARD [Suspect]
     Indication: PSYCHOTIC DISORDER
     Dosage: 450MG UNKNOWN
     Route: 048
     Dates: end: 20030709
  2. NORVASC [Suspect]
     Indication: HYPERTENSION
     Dosage: 5MG UNKNOWN
     Route: 048
     Dates: start: 20030703, end: 20030709
  3. SURMONTIL [Suspect]
     Indication: PSYCHOTIC DISORDER
     Dosage: 25MG PER DAY
     Route: 048
     Dates: start: 20030530, end: 20030709
  4. SEROPRAM [Suspect]
     Indication: PSYCHOTIC DISORDER
     Dosage: 20MG UNKNOWN
     Route: 048
     Dates: start: 20030523, end: 20030709
  5. SERESTA [Concomitant]
     Indication: DRUG USE FOR UNKNOWN INDICATION
     Dosage: 22.5MG PER DAY
     Route: 048
  6. TRIATEC COMP [Concomitant]
     Indication: HYPERTENSION
     Route: 048
  7. NEXIUM [Concomitant]
     Indication: OESOPHAGEAL VARICES HAEMORRHAGE
     Dosage: 40MG PER DAY
     Route: 048
  8. INSULIN MIXTARD [Concomitant]
     Indication: DIABETES MELLITUS
     Route: 058

REACTIONS (3)
  - CATATONIA [None]
  - DRUG INTERACTION [None]
  - HYPERTONIA [None]
